FAERS Safety Report 22333356 (Version 1)
Quarter: 2023Q2

REPORT INFORMATION
  Report Type: Spontaneous
  Country: US (occurrence: US)
  Receive Date: 20230517
  Receipt Date: 20230517
  Transmission Date: 20230722
  Serious: Yes (Hospitalization, Other)
  Sender: FDA-Public Use
  Company Number: US-TAKEDA-2023TUS047863

PATIENT
  Age: 68 Year
  Sex: Male
  Weight: 41 kg

DRUGS (3)
  1. MOTEGRITY [Suspect]
     Active Substance: PRUCALOPRIDE SUCCINATE
     Indication: Constipation
     Dosage: 2 MILLIGRAM
     Route: 065
     Dates: start: 202205
  2. MOTEGRITY [Suspect]
     Active Substance: PRUCALOPRIDE SUCCINATE
     Dosage: 1 MILLIGRAM
     Route: 065
  3. LINZESS [Concomitant]
     Active Substance: LINACLOTIDE

REACTIONS (2)
  - Renal impairment [Unknown]
  - Urinary tract infection [Unknown]
